FAERS Safety Report 5221728-X (Version None)
Quarter: 2007Q1

REPORT INFORMATION
  Report Type: 
  Country: None (occurrence: None)
  Receive Date: 20070125
  Receipt Date: 20070125
  Transmission Date: 20070707
  Serious: Yes (Death)
  Sender: FDA-Public Use
  Company Number: None

PATIENT
  Sex: Male

DRUGS (1)
  1. HABITROL [Suspect]
     Dosage: 21MG DAILY CUTANEOUS
     Route: 003

REACTIONS (1)
  - DEATH [None]
